FAERS Safety Report 6234573-3 (Version None)
Quarter: 2009Q2

REPORT INFORMATION
  Report Type: 
  Country: None (occurrence: None)
  Receive Date: 20090615
  Receipt Date: 20090603
  Transmission Date: 20091009
  Serious: Yes (Hospitalization)
  Sender: FDA-Public Use
  Company Number: 2009-01927

PATIENT
  Age: 64 Year
  Sex: Male
  Weight: 71.5 kg

DRUGS (5)
  1. VELCADE [Suspect]
     Indication: MULTIPLE MYELOMA
     Dosage: 2.4 MG, INTRAVENOUS
     Route: 042
     Dates: start: 20090427, end: 20090504
  2. DIGOXIN [Concomitant]
  3. VERAPAMIL [Concomitant]
  4. DALTEPARIN SODIUM [Concomitant]
  5. SYMBICORT [Concomitant]

REACTIONS (2)
  - ATRIAL FIBRILLATION [None]
  - ORTHOSTATIC HYPOTENSION [None]
